FAERS Safety Report 5670878-2 (Version None)
Quarter: 2008Q1

REPORT INFORMATION
  Report Type: 
  Country: None (occurrence: None)
  Receive Date: 20080318
  Receipt Date: 20080303
  Transmission Date: 20080703
  Serious: Yes (Hospitalization, Congenital Anomaly)
  Sender: FDA-Public Use
  Company Number: A0664386A

PATIENT
  Sex: Female

DRUGS (5)
  1. PAXIL [Suspect]
     Indication: POSTPARTUM DEPRESSION
     Dosage: 30MG PER DAY
     Dates: start: 20011031
  2. VITAMIN TAB [Concomitant]
  3. CYTOMEL [Concomitant]
     Dates: start: 20021001
  4. PROMETHAZINE [Concomitant]
     Dates: start: 20021101, end: 20030401
  5. LEVOXYL [Concomitant]
     Dates: start: 20020901, end: 20041101

REACTIONS (5)
  - COARCTATION OF THE AORTA [None]
  - CONGENITAL AORTIC STENOSIS [None]
  - DRUG EXPOSURE DURING PREGNANCY [None]
  - HEART DISEASE CONGENITAL [None]
  - VENTRICULAR SEPTAL DEFECT [None]
